FAERS Safety Report 20305372 (Version 4)
Quarter: 2022Q3

REPORT INFORMATION
  Report Type: Spontaneous
  Country: US (occurrence: US)
  Receive Date: 20220106
  Receipt Date: 20220819
  Transmission Date: 20221026
  Serious: No
  Sender: FDA-Public Use
  Company Number: US-PFIZER INC-2021591566

PATIENT
  Age: 52 Year
  Sex: Female
  Weight: 174.63 kg

DRUGS (2)
  1. XELJANZ XR [Suspect]
     Active Substance: TOFACITINIB CITRATE
     Indication: Psoriatic arthropathy
     Dosage: IN EVENING
     Route: 048
     Dates: start: 202111
  2. SULFASALAZINE [Concomitant]
     Active Substance: SULFASALAZINE
     Dosage: 1000 MG, 2X/DAY
     Dates: start: 20220621

REACTIONS (5)
  - Drug ineffective [Unknown]
  - Pain [Unknown]
  - COVID-19 [Unknown]
  - Dyspnoea [Recovering/Resolving]
  - Abscess [Unknown]

NARRATIVE: CASE EVENT DATE: 20220506
